FAERS Safety Report 20064471 (Version 1)
Quarter: 2021Q4

REPORT INFORMATION
  Report Type: Spontaneous
  Country: US (occurrence: US)
  Receive Date: 20211112
  Receipt Date: 20211112
  Transmission Date: 20220304
  Serious: Yes (Other)
  Sender: FDA-Public Use
  Company Number: US-GLAXOSMITHKLINE-US2021GSK233728

PATIENT
  Sex: Male

DRUGS (8)
  1. ZANTAC [Suspect]
     Active Substance: RANITIDINE HYDROCHLORIDE
     Indication: Gastrooesophageal reflux disease
     Dosage: 150 MG BOTH
     Route: 065
     Dates: start: 199009, end: 199406
  2. ZANTAC [Suspect]
     Active Substance: RANITIDINE HYDROCHLORIDE
     Indication: Gastritis
     Dosage: 300 MG, QD
     Route: 065
     Dates: start: 199009, end: 199406
  3. ZANTAC [Suspect]
     Active Substance: RANITIDINE HYDROCHLORIDE
     Indication: Gastrooesophageal reflux disease
     Dosage: 150 MG BOTH
     Route: 065
     Dates: start: 199009, end: 199406
  4. ZANTAC [Suspect]
     Active Substance: RANITIDINE HYDROCHLORIDE
     Indication: Gastritis
     Dosage: 300 MG, QD
     Route: 065
     Dates: start: 199009, end: 199406
  5. ZANTAC [Suspect]
     Active Substance: RANITIDINE HYDROCHLORIDE
     Indication: Gastrooesophageal reflux disease
     Dosage: 150 MG BOTH
     Route: 065
     Dates: start: 199009, end: 199406
  6. ZANTAC [Suspect]
     Active Substance: RANITIDINE HYDROCHLORIDE
     Indication: Gastritis
     Dosage: 300 MG, QD
     Route: 065
     Dates: start: 199009, end: 199406
  7. RANITIDINE [Suspect]
     Active Substance: RANITIDINE
     Indication: Gastrooesophageal reflux disease
     Dosage: 150 MG BOTH
     Route: 065
     Dates: start: 199009, end: 199406
  8. RANITIDINE [Suspect]
     Active Substance: RANITIDINE
     Indication: Gastritis
     Dosage: 300 MG, QD
     Route: 065
     Dates: start: 199009, end: 199406

REACTIONS (3)
  - Colorectal cancer [Unknown]
  - Non-Hodgkin^s lymphoma [Unknown]
  - Non-Hodgkin^s lymphoma [Unknown]
